FAERS Safety Report 8608711-9 (Version None)
Quarter: 2012Q3

REPORT INFORMATION
  Report Type: 
  Country: None (occurrence: None)
  Receive Date: 20120809
  Receipt Date: 20120809
  Transmission Date: 20120928
  Serious: No
  Sender: FDA-Public Use
  Company Number: None

PATIENT
  Sex: Female

DRUGS (1)
  1. BOTOX [Suspect]
     Dosage: 150 UNITS Q3MONTHS IM
     Route: 030
     Dates: start: 20120409, end: 20120709

REACTIONS (4)
  - EYELID OEDEMA [None]
  - SWELLING [None]
  - EYELID PTOSIS [None]
  - MUSCULAR WEAKNESS [None]
